FAERS Safety Report 17056873 (Version 2)
Quarter: 2019Q4

REPORT INFORMATION
  Report Type: Spontaneous
  Country: US (occurrence: US)
  Receive Date: 20191121
  Receipt Date: 20191211
  Transmission Date: 20200122
  Serious: Yes (Other)
  Sender: FDA-Public Use
  Company Number: US-HIKMA PHARMACEUTICALS USA INC.-US-H14001-19-05775

PATIENT
  Age: 49 Year
  Sex: Male

DRUGS (2)
  1. LORAZEPAM. [Suspect]
     Active Substance: LORAZEPAM
     Indication: AMYOTROPHIC LATERAL SCLEROSIS
     Route: 060
     Dates: start: 20191023
  2. LORAZEPAM. [Suspect]
     Active Substance: LORAZEPAM
     Indication: MUSCLE SPASMS

REACTIONS (5)
  - Drug ineffective [Not Recovered/Not Resolved]
  - Choking [Not Recovered/Not Resolved]
  - Tremor [Not Recovered/Not Resolved]
  - Rash [Recovered/Resolved]
  - Withdrawal syndrome [Not Recovered/Not Resolved]

NARRATIVE: CASE EVENT DATE: 20191023
